FAERS Safety Report 17939941 (Version 4)
Quarter: 2020Q3

REPORT INFORMATION
  Report Type: Spontaneous
  Country: RS (occurrence: RS)
  Receive Date: 20200624
  Receipt Date: 20200921
  Transmission Date: 20201103
  Serious: Yes (Other)
  Sender: FDA-Public Use
  Company Number: RS-JNJFOC-20200627168

PATIENT
  Age: 55 Year
  Sex: Female

DRUGS (3)
  1. STELARA [Suspect]
     Active Substance: USTEKINUMAB
     Indication: PSORIASIS
     Dosage: 45 MG/0.5ML
     Route: 058
     Dates: start: 20191016
  2. STELARA [Suspect]
     Active Substance: USTEKINUMAB
     Dosage: 4TH DOSE
     Route: 058
     Dates: start: 20200521
  3. STELARA [Suspect]
     Active Substance: USTEKINUMAB
     Dosage: 5TH DOSE
     Route: 058
     Dates: start: 20200629

REACTIONS (2)
  - Dermatitis exfoliative generalised [Not Recovered/Not Resolved]
  - Diabetes mellitus inadequate control [Unknown]

NARRATIVE: CASE EVENT DATE: 202006
